FAERS Safety Report 22082902 (Version 1)
Quarter: 2023Q1

REPORT INFORMATION
  Report Type: Spontaneous
  Country: US (occurrence: US)
  Receive Date: 20230310
  Receipt Date: 20230310
  Transmission Date: 20230417
  Serious: No
  Sender: FDA-Public Use
  Company Number: US-BRISTOL-MYERS SQUIBB COMPANY-2023-034901

PATIENT
  Age: 31 Year
  Sex: Male

DRUGS (1)
  1. SOTYKTU [Suspect]
     Active Substance: DEUCRAVACITINIB
     Indication: Guttate psoriasis
     Route: 048
     Dates: start: 202302

REACTIONS (2)
  - Acne [Recovering/Resolving]
  - Folliculitis [Recovering/Resolving]
